FAERS Safety Report 8540061-1 (Version None)
Quarter: 2012Q3

REPORT INFORMATION
  Report Type: 
  Country: None (occurrence: None)
  Receive Date: 20120713
  Receipt Date: 20120627
  Transmission Date: 20120928
  Serious: Yes (Hospitalization)
  Sender: FDA-Public Use
  Company Number: VAL_00788_2012

PATIENT
  Age: 77 Year
  Sex: Male

DRUGS (2)
  1. CALCIUM CARBONATE [Suspect]
     Indication: PRODUCT USED FOR UNKNOWN INDICATION
     Dosage: DF ORAL
     Route: 048
     Dates: end: 20110601
  2. ROCALTROL [Suspect]
     Indication: PRODUCT USED FOR UNKNOWN INDICATION
     Dosage: DF ORAL
     Route: 048
     Dates: end: 20110601

REACTIONS (7)
  - NAUSEA [None]
  - EOSINOPHIL COUNT INCREASED [None]
  - EOSINOPHILIC MYOCARDITIS [None]
  - CARDIAC FAILURE ACUTE [None]
  - DECREASED APPETITE [None]
  - HYPERCALCAEMIA [None]
  - PLEURAL EFFUSION [None]
